FAERS Safety Report 8478557-3 (Version None)
Quarter: 2012Q2

REPORT INFORMATION
  Report Type: 
  Country: None (occurrence: None)
  Receive Date: 20120605
  Receipt Date: 20120605
  Transmission Date: 20120825
  Serious: Yes (Other)
  Sender: FDA-Public Use
  Company Number: DSA_57792_2012

PATIENT

DRUGS (3)
  1. CISPLATIN [Suspect]
     Indication: OESOPHAGEAL CARCINOMA
     Dosage: (50MG/BODY SURFACE AREA FOR ONE HOUR EVERY 14 DAYS OF A 6 WEEK CYCLE)
  2. FLUOROURACIL [Suspect]
     Indication: OESOPHAGEAL CARCINOMA
     Dosage: (2000 MG/BODY SURFACE AREA OVER 24 HOURS  FOR EVERY 6 WEEKS, FOR 6 WEEKS
  3. LEUCOVORIN CALCIUM [Suspect]
     Indication: OESOPHAGEAL CARCINOMA
     Dosage: (500 MG FOR 2 HOURS EVERY 14 DAYS);

REACTIONS (1)
  - HAEMATOTOXICITY [None]
